FAERS Safety Report 8169683-7 (Version None)
Quarter: 2012Q1

REPORT INFORMATION
  Report Type: 
  Country: None (occurrence: None)
  Receive Date: 20120228
  Receipt Date: 20120222
  Transmission Date: 20120608
  Serious: No
  Sender: FDA-Public Use
  Company Number: US-PFIZER INC-2012047389

PATIENT
  Sex: Male
  Weight: 83.9 kg

DRUGS (4)
  1. NEXIUM [Concomitant]
     Indication: GASTRIC DISORDER
     Dosage: UNK
  2. VIAGRA [Suspect]
     Indication: ERECTILE DYSFUNCTION
     Dosage: 100 MG, AS NEEDED
     Route: 048
     Dates: start: 20011029
  3. PLAVIX [Concomitant]
     Indication: CARDIAC DISORDER
     Dosage: UNK
  4. LOTREL [Concomitant]
     Indication: HYPERTENSION
     Dosage: 5/10 MG, UNK

REACTIONS (1)
  - RASH [None]
